FAERS Safety Report 7572413 (Version 4)
Quarter: 2012Q4

REPORT INFORMATION
  Report Type: 
  Country: US (occurrence: US)
  Receive Date: 20100903
  Receipt Date: 20121213
  Transmission Date: 20130627
  Serious: Yes (Other)
  Sender: FDA-Public Use
  Company Number: US-BAYER-201032098NA

PATIENT
  Age: 63 Year
  Sex: Male
  Weight: 81.63 kg

DRUGS (10)
  1. TRASYLOL [Suspect]
     Indication: CORONARY ARTERY BYPASS GRAFT
     Dosage: UNK
     Route: 042
     Dates: start: 20041202
  2. ALLOPURINOL [Concomitant]
     Indication: GOUT
     Dosage: UNK
     Route: 048
     Dates: start: 20041123
  3. ASPIRIN [Concomitant]
     Indication: PLATELET AGGREGATION INHIBITION
     Dosage: UNK
     Route: 048
     Dates: start: 20041123
  4. GABAPENTIN [Concomitant]
     Indication: NEUROPATHIC PAIN
     Dosage: UNK
     Route: 048
     Dates: start: 20041123
  5. GABAPENTIN [Concomitant]
     Indication: SEIZURES
  6. GLYBURIDE [Concomitant]
     Indication: DIABETES
     Dosage: UNK
     Route: 048
     Dates: start: 20041123
  7. LORATADINE [Concomitant]
     Indication: ALLERGIC REACTION
     Dosage: UNK
     Route: 048
     Dates: start: 20041123
  8. LOVASTATIN [Concomitant]
     Indication: HIGH CHOLESTEROL
     Dosage: UNK
     Route: 048
     Dates: start: 20041123
  9. CAPTOPRIL [Concomitant]
     Indication: DRUG USE FOR UNKNOWN INDICATION
  10. METOPROLOL [Concomitant]
     Indication: DRUG USE FOR UNKNOWN INDICATION

REACTIONS (4)
  - Renal failure acute [Unknown]
  - Renal failure [Unknown]
  - Injury [Unknown]
  - Pain [Unknown]
